FAERS Safety Report 23051466 (Version 1)
Quarter: 2023Q4

REPORT INFORMATION
  Report Type: Spontaneous
  Country: BE (occurrence: BE)
  Receive Date: 20231010
  Receipt Date: 20231010
  Transmission Date: 20240109
  Serious: Yes (Other)
  Sender: FDA-Public Use
  Company Number: BE-BAYER-2023A140923

PATIENT

DRUGS (1)
  1. NEXAVAR [Suspect]
     Active Substance: SORAFENIB
     Indication: Adenoid cystic carcinoma
     Dosage: UNK
     Dates: start: 202303, end: 202305

REACTIONS (2)
  - Adenoid cystic carcinoma [None]
  - Off label use [None]

NARRATIVE: CASE EVENT DATE: 20230301
